FAERS Safety Report 16687273 (Version 2)
Quarter: 2019Q3

REPORT INFORMATION
  Report Type: Spontaneous
  Country: US (occurrence: US)
  Receive Date: 20190809
  Receipt Date: 20190913
  Transmission Date: 20191004
  Serious: Yes (Hospitalization, Other)
  Sender: FDA-Public Use
  Company Number: US-KYOWAKIRIN-2019BKK012586

PATIENT

DRUGS (1)
  1. POTELIGEO [Suspect]
     Active Substance: MOGAMULIZUMAB-KPKC
     Indication: CUTANEOUS T-CELL LYMPHOMA
     Dosage: 120 MG, EVERY 2 WEEKS
     Route: 042
     Dates: start: 201905, end: 20190528

REACTIONS (3)
  - Inappropriate schedule of product administration [Recovered/Resolved]
  - Tumour lysis syndrome [Unknown]
  - Hospitalisation [Unknown]

NARRATIVE: CASE EVENT DATE: 201905
